FAERS Safety Report 6957370-X (Version None)
Quarter: 2010Q3

REPORT INFORMATION
  Report Type: 
  Country: None (occurrence: None)
  Receive Date: 20100831
  Receipt Date: 20100818
  Transmission Date: 20110219
  Serious: No
  Sender: FDA-Public Use
  Company Number: US-B.I. PHARMACEUTICALS,INC./RIDGEFIELD-2010-BP-09411BP

PATIENT
  Sex: Male

DRUGS (1)
  1. FLOMAX [Suspect]
     Dosage: 0.4 MG
     Dates: start: 20100701

REACTIONS (1)
  - HEPATITIS C [None]
